FAERS Safety Report 18972352 (Version 1)
Quarter: 2021Q1

REPORT INFORMATION
  Report Type: Report from Study
  Country: GB (occurrence: GB)
  Receive Date: 20210305
  Receipt Date: 20210305
  Transmission Date: 20210420
  Serious: Yes (Other)
  Sender: FDA-Public Use
  Company Number: GB-PFIZER INC-2021210820

PATIENT
  Sex: Female

DRUGS (4)
  1. SODIUM VALPROATE [Suspect]
     Active Substance: VALPROATE SODIUM
     Dosage: 14.4 MG/ML, 3 CYCLE
  2. CARBOPLATIN. [Suspect]
     Active Substance: CARBOPLATIN
     Indication: BRAIN STEM GLIOMA
     Dosage: 0.18 MG/ML, CYCLIC, 1 CYCLE
  3. CARBOPLATIN. [Suspect]
     Active Substance: CARBOPLATIN
     Dosage: 0.18 MG/ML, CYCLIC, 3 CYCLE
  4. SODIUM VALPROATE [Suspect]
     Active Substance: VALPROATE SODIUM
     Indication: BRAIN STEM GLIOMA
     Dosage: 14.4 MG/ML, 1 CYCLE

REACTIONS (1)
  - VIth nerve paralysis [Unknown]
